FAERS Safety Report 13098156 (Version 1)
Quarter: 2017Q1

REPORT INFORMATION
  Report Type: Spontaneous
  Country: US (occurrence: US)
  Receive Date: 20170109
  Receipt Date: 20170109
  Transmission Date: 20170428
  Serious: Yes (Death, Hospitalization)
  Sender: FDA-Public Use
  Company Number: US-BAYER-2017-001436

PATIENT
  Age: 33 Year
  Sex: Male

DRUGS (2)
  1. CHLORPHENIRAMINE MALEATE + DEXTROMETHORPHAN HYDROBROMIDE [Suspect]
     Active Substance: CHLORPHENIRAMINE MALEATE\DEXTROMETHORPHAN HYDROBROMIDE
     Route: 048
  2. BUPROPION. [Suspect]
     Active Substance: BUPROPION

REACTIONS (2)
  - Toxicity to various agents [Fatal]
  - Completed suicide [None]
